FAERS Safety Report 10545246 (Version 2)
Quarter: 2014Q4

REPORT INFORMATION
  Report Type: Spontaneous
  Country: IT (occurrence: IT)
  Receive Date: 20141027
  Receipt Date: 20141201
  Transmission Date: 20150529
  Serious: Yes (Life-Threatening)
  Sender: FDA-Public Use
  Company Number: IT-SA-2014SA143518

PATIENT
  Age: 56 Year
  Sex: Female

DRUGS (1)
  1. OXALIPLATIN. [Suspect]
     Active Substance: OXALIPLATIN
     Route: 065
     Dates: start: 20140603

REACTIONS (6)
  - Blood pressure increased [Unknown]
  - Loss of consciousness [Unknown]
  - Infusion site reaction [Unknown]
  - Tremor [Unknown]
  - Extrasystoles [Unknown]
  - Urticaria [Unknown]

NARRATIVE: CASE EVENT DATE: 20140624
